FAERS Safety Report 5504999-1 (Version None)
Quarter: 2007Q4

REPORT INFORMATION
  Report Type: 
  Country: None (occurrence: None)
  Receive Date: 20071031
  Receipt Date: 20071031
  Transmission Date: 20080405
  Serious: Yes (Hospitalization)
  Sender: FDA-Public Use
  Company Number: None

PATIENT
  Age: 79 Year
  Sex: Female
  Weight: 53.2 kg

DRUGS (2)
  1. CYTOXAN [Suspect]
     Indication: BREAST CANCER
     Dosage: 800 MG IV
     Route: 042
     Dates: start: 20070806, end: 20071008
  2. CYTOXAN [Suspect]
     Dosage: 960 MG IV
     Route: 042

REACTIONS (3)
  - FEBRILE NEUTROPENIA [None]
  - LUNG INJURY [None]
  - PNEUMONITIS [None]
